FAERS Safety Report 6314602-9 (Version None)
Quarter: 2009Q3

REPORT INFORMATION
  Report Type: 
  Country: None (occurrence: None)
  Receive Date: 20090817
  Receipt Date: 20090817
  Transmission Date: 20100115
  Serious: Yes (Hospitalization)
  Sender: FDA-Public Use
  Company Number: None

PATIENT
  Sex: Male
  Weight: 89.7 kg

DRUGS (12)
  1. SEROQUEL [Suspect]
     Indication: DEMENTIA
     Dosage: 150MG @ HS
     Dates: start: 20090606, end: 20090713
  2. SEROQUEL [Suspect]
     Indication: PSYCHOTIC DISORDER
     Dosage: 150MG @ HS
     Dates: start: 20090606, end: 20090713
  3. SEROQUEL [Suspect]
     Dosage: 50MG Q D @ 150MG @ HS
     Dates: start: 20090714
  4. TRAZODONE HCL [Concomitant]
  5. CITAPROLAM [Concomitant]
  6. METOPROLOL [Concomitant]
  7. ISOSORBIDE DINITRATE [Concomitant]
  8. PREVACID [Concomitant]
  9. TEMAZEPAM [Concomitant]
  10. DONEZEPRIL [Concomitant]
  11. LISINOPRIL [Concomitant]
  12. ZOCOR [Concomitant]

REACTIONS (4)
  - AGITATION [None]
  - DISINHIBITION [None]
  - SEXUAL DYSFUNCTION [None]
  - URINARY TRACT INFECTION [None]
